FAERS Safety Report 5466365-7 (Version None)
Quarter: 2007Q3

REPORT INFORMATION
  Report Type: 
  Country: None (occurrence: None)
  Receive Date: 20070920
  Receipt Date: 20070911
  Transmission Date: 20080115
  Serious: Yes (Hospitalization)
  Sender: FDA-Public Use
  Company Number: HECT-10304

PATIENT
  Sex: Female

DRUGS (4)
  1. HECTOROL [Suspect]
     Indication: CALCIUM METABOLISM DISORDER
     Dosage: 2.5 MCG 3X/W PO
     Route: 048
  2. HECTOROL [Suspect]
     Indication: FATIGUE
     Dosage: 2.5 MCG 3X/W PO
     Route: 048
  3. DIDRONEL [Concomitant]
  4. METHADONE HCL [Concomitant]

REACTIONS (1)
  - ACCIDENTAL OVERDOSE [None]
